FAERS Safety Report 14471919 (Version 1)
Quarter: 2018Q1

REPORT INFORMATION
  Report Type: Report from Study
  Country: CA (occurrence: CA)
  Receive Date: 20180131
  Receipt Date: 20180131
  Transmission Date: 20180509
  Serious: Yes (Disabling)
  Sender: FDA-Public Use
  Company Number: CA-HLSUS-2017-CA-001263

PATIENT
  Age: 67 Year
  Sex: Female
  Weight: 52.6 kg

DRUGS (1)
  1. CLOZARIL [Suspect]
     Active Substance: CLOZAPINE
     Indication: SCHIZOPHRENIA
     Route: 048
     Dates: start: 20080902, end: 20171109

REACTIONS (11)
  - Dysphagia [Recovering/Resolving]
  - Bronchitis [Recovered/Resolved with Sequelae]
  - Tremor [Unknown]
  - Aggression [Unknown]
  - Gait inability [Recovering/Resolving]
  - Paranoia [Unknown]
  - Neutrophil count decreased [Recovered/Resolved with Sequelae]
  - Extrapyramidal disorder [Unknown]
  - Depression [Unknown]
  - Dehydration [Recovered/Resolved with Sequelae]
  - Hallucination [Unknown]

NARRATIVE: CASE EVENT DATE: 20171109
